FAERS Safety Report 9392628 (Version 2)
Quarter: 2013Q4

REPORT INFORMATION
  Report Type: Spontaneous
  Country: US (occurrence: US)
  Receive Date: 20130710
  Receipt Date: 20131031
  Transmission Date: 20140711
  Serious: Yes (Other)
  Sender: FDA-Public Use
  Company Number: US-BAYER-2013-082648

PATIENT
  Age: 19 Year
  Sex: Female
  Weight: 58.96 kg

DRUGS (4)
  1. MIRENA [Suspect]
     Indication: CONTRACEPTION
     Dosage: 20 MCG/24HR, CONT
     Route: 015
     Dates: start: 20110617, end: 20110720
  2. PRENATAL W/FOLIC ACID /02284401/ [Concomitant]
     Dosage: 1, ONCE A DAY
  3. KEFLEX [Concomitant]
     Dosage: 500 MG, TID
  4. SMZ-TMP [Concomitant]
     Dosage: 800 TO 160 MG, BID

REACTIONS (6)
  - Device dislocation [None]
  - Device dislocation [None]
  - Injury [None]
  - Pain [None]
  - Emotional distress [None]
  - Abdominal tenderness [Recovering/Resolving]
